FAERS Safety Report 5501347-8 (Version None)
Quarter: 2007Q4

REPORT INFORMATION
  Report Type: 
  Country: None (occurrence: None)
  Receive Date: 20071026
  Receipt Date: 20071010
  Transmission Date: 20080405
  Serious: Yes (Death)
  Sender: FDA-Public Use
  Company Number: 8027445

PATIENT
  Age: 80 Year
  Sex: Male

DRUGS (1)
  1. TUSSIONEX [Suspect]
     Indication: COUGH
     Dosage: 10 MG 2/D PO
     Route: 048
     Dates: start: 20070926, end: 20071011

REACTIONS (1)
  - BLOOD GLUCOSE INCREASED [None]
